FAERS Safety Report 15533009 (Version 1)
Quarter: 2018Q4

REPORT INFORMATION
  Report Type: Spontaneous
  Country: EG (occurrence: EG)
  Receive Date: 20181019
  Receipt Date: 20181019
  Transmission Date: 20190205
  Serious: Yes (Other)
  Sender: FDA-Public Use
  Company Number: EG-SA-2018SA286420

PATIENT
  Age: 39 Year
  Sex: Male

DRUGS (9)
  1. VIGAMOX [Concomitant]
     Active Substance: MOXIFLOXACIN HYDROCHLORIDE
     Indication: RETINOPATHY
     Dosage: UNK
  2. NOVORAPID [Concomitant]
     Active Substance: INSULIN ASPART
     Indication: TYPE 2 DIABETES MELLITUS
     Dosage: UNK
     Route: 058
  3. DEXATROL [DEXAMETHASONE;NEOMYCIN SULFATE;POLYMYXIN B SULFATE] [Concomitant]
     Dosage: UNK
  4. LANTUS [Suspect]
     Active Substance: INSULIN GLARGINE
     Indication: TYPE 2 DIABETES MELLITUS
     Dosage: 50 IU, QD
     Route: 058
  5. LUCENTIS [Concomitant]
     Active Substance: RANIBIZUMAB
     Indication: RETINOPATHY
     Dosage: UNK
  6. BETOPTIC [Concomitant]
     Active Substance: BETAXOLOL HYDROCHLORIDE
     Indication: RETINOPATHY
     Dosage: UNK
  7. BETOPTIC [Concomitant]
     Active Substance: BETAXOLOL HYDROCHLORIDE
     Indication: MACULAR OEDEMA
  8. VIGAMOX [Concomitant]
     Active Substance: MOXIFLOXACIN HYDROCHLORIDE
     Indication: MACULAR OEDEMA
  9. LUCENTIS [Concomitant]
     Active Substance: RANIBIZUMAB
     Indication: MACULAR OEDEMA

REACTIONS (4)
  - Macular oedema [Not Recovered/Not Resolved]
  - Retinopathy [Not Recovered/Not Resolved]
  - Blood glucose increased [Not Recovered/Not Resolved]
  - Device use issue [Unknown]
